FAERS Safety Report 7751416-7 (Version None)
Quarter: 2011Q3

REPORT INFORMATION
  Report Type: 
  Country: None (occurrence: None)
  Receive Date: 20110914
  Receipt Date: 20110907
  Transmission Date: 20111222
  Serious: Yes (Life-Threatening)
  Sender: FDA-Public Use
  Company Number: US-BAYER-2011-083459

PATIENT
  Sex: Male

DRUGS (2)
  1. AVELOX [Suspect]
     Indication: SKIN INFECTION
     Dosage: 500 MG, ONCE
     Route: 048
     Dates: start: 20110901
  2. LEVAQUIN [Concomitant]

REACTIONS (4)
  - MALAISE [None]
  - FEELING HOT [None]
  - HYPERSENSITIVITY [None]
  - RASH MACULAR [None]
